FAERS Safety Report 8552923 (Version 3)
Quarter: 2013Q1

REPORT INFORMATION
  Report Type: Spontaneous
  Country: NL (occurrence: NL)
  Receive Date: 20120509
  Receipt Date: 20130125
  Transmission Date: 20140127
  Serious: Yes (Life-Threatening, Hospitalization, Other)
  Sender: FDA-Public Use
  Company Number: NL-BIOGENIDEC-2012BI015370

PATIENT
  Age: 65 Year
  Sex: Female
  Weight: 80 kg

DRUGS (5)
  1. TYSABRI [Suspect]
     Indication: RELAPSING-REMITTING MULTIPLE SCLEROSIS
     Route: 042
     Dates: start: 20070702, end: 20120427
  2. AMLODIPINE [Concomitant]
  3. THIAZIDE [Concomitant]
  4. LIPITOR [Concomitant]
  5. SELOKEN [Concomitant]

REACTIONS (5)
  - Breast cancer [Not Recovered/Not Resolved]
  - Optic neuritis [Recovered/Resolved]
  - Visual evoked potentials abnormal [Recovered/Resolved]
  - Back pain [Unknown]
  - Posture abnormal [Unknown]
